FAERS Safety Report 10224133 (Version 1)
Quarter: 2014Q2

REPORT INFORMATION
  Report Type: Spontaneous
  Country: DE (occurrence: DE)
  Receive Date: 20140609
  Receipt Date: 20140609
  Transmission Date: 20141212
  Serious: No
  Sender: FDA-Public Use
  Company Number: PHHY2014DE070091

PATIENT
  Sex: Female

DRUGS (2)
  1. LAMISIL [Suspect]
     Indication: ONYCHOMYCOSIS
     Dosage: 250 MG, BID
     Route: 048
  2. LAMISIL [Suspect]
     Dosage: 250 MG, BID
     Route: 048

REACTIONS (1)
  - Drug administration error [Unknown]
